FAERS Safety Report 18206482 (Version 2)
Quarter: 2020Q3

REPORT INFORMATION
  Report Type: Other
  Country: LB (occurrence: LB)
  Receive Date: 20200828
  Receipt Date: 20200928
  Transmission Date: 20201103
  Serious: Yes (Other)
  Sender: FDA-Public Use
  Company Number: LB-ROCHE-2666894

PATIENT
  Age: 78 Year
  Sex: Female

DRUGS (2)
  1. LUCENTIS [Suspect]
     Active Substance: RANIBIZUMAB
     Indication: DIABETIC RETINAL OEDEMA
     Dosage: 10 MG/ML
     Route: 031
     Dates: start: 20200810
  2. LUCENTIS [Suspect]
     Active Substance: RANIBIZUMAB
     Dosage: 10 MG/ML
     Route: 031
     Dates: start: 20200821

REACTIONS (2)
  - Rhinorrhoea [Recovering/Resolving]
  - Eye pain [Recovered/Resolved]

NARRATIVE: CASE EVENT DATE: 20200820
